FAERS Safety Report 8124270-1 (Version None)
Quarter: 2012Q1

REPORT INFORMATION
  Report Type: 
  Country: None (occurrence: None)
  Receive Date: 20120209
  Receipt Date: 20120207
  Transmission Date: 20120608
  Serious: Yes (Hospitalization)
  Sender: FDA-Public Use
  Company Number: IT-PFIZER INC-2012033933

PATIENT

DRUGS (4)
  1. SUTENT [Suspect]
     Indication: RENAL CELL CARCINOMA
     Dosage: 50 MG, 1X/DAY
     Route: 048
     Dates: start: 20111116, end: 20111128
  2. LANSOPRAZOLE [Concomitant]
     Dosage: 30 MG, 1X/DAY
     Dates: start: 20100501, end: 20120202
  3. LEVOTHYROXINE SODIUM [Concomitant]
     Dosage: 125 MG, 1X/DAY
     Route: 048
     Dates: start: 20110801, end: 20120202
  4. NEBIVOLOL HCL [Concomitant]
     Dosage: 5 MG, 1X/DAY
     Route: 048
     Dates: start: 20080101, end: 20120202

REACTIONS (2)
  - PANCREATITIS ACUTE [None]
  - CHOLECYSTITIS ACUTE [None]
